FAERS Safety Report 9730456 (Version 2)
Quarter: 2013Q4

REPORT INFORMATION
  Report Type: Spontaneous
  Country: US (occurrence: US)
  Receive Date: 20131202
  Receipt Date: 20131202
  Transmission Date: 20140711
  Serious: Yes (Life-Threatening, Hospitalization, Disabling, Other)
  Sender: FDA-Public Use
  Company Number: US-ABBVIE-13P-163-1125541-00

PATIENT
  Age: 53 Year
  Sex: Male
  Weight: 108.51 kg

DRUGS (21)
  1. VICODIN HP [Suspect]
     Indication: PAIN
     Dosage: 10/325MG EVERY 4-6 HOURS FOR PAIN
     Dates: start: 20090917, end: 20100118
  2. VICODIN HP [Suspect]
     Indication: NEUROPATHY PERIPHERAL
  3. VICODIN [Suspect]
     Indication: PRODUCT USED FOR UNKNOWN INDICATION
     Dosage: REGULAR STRENGTH
     Dates: start: 20100118, end: 20121008
  4. GLUCOTROL [Concomitant]
     Indication: DIABETES MELLITUS
     Dates: start: 2001
  5. LYRICA [Concomitant]
     Indication: DIABETIC NEUROPATHY
     Dates: start: 2004, end: 200901
  6. BABY ASPIRIN [Concomitant]
     Indication: PRODUCT USED FOR UNKNOWN INDICATION
  7. JANUVIA [Concomitant]
     Indication: PRODUCT USED FOR UNKNOWN INDICATION
  8. ACTOS [Concomitant]
     Indication: PRODUCT USED FOR UNKNOWN INDICATION
  9. GLUCOPHAGE [Concomitant]
     Indication: DIABETES MELLITUS
     Route: 048
     Dates: start: 20110314
  10. CYMBALTA [Concomitant]
     Indication: PRODUCT USED FOR UNKNOWN INDICATION
  11. WELLBUTRIN [Concomitant]
     Indication: PRODUCT USED FOR UNKNOWN INDICATION
  12. TRILEPTAL [Concomitant]
     Indication: PRODUCT USED FOR UNKNOWN INDICATION
     Dosage: 150 AM, 300 PM
  13. RELAFEN [Concomitant]
     Indication: PRODUCT USED FOR UNKNOWN INDICATION
  14. DAYPRO [Concomitant]
     Indication: PRODUCT USED FOR UNKNOWN INDICATION
  15. LISINOPRIL HCT [Concomitant]
     Indication: PRODUCT USED FOR UNKNOWN INDICATION
     Dosage: 20/25 DAILY
  16. NEURONTIN [Concomitant]
     Indication: PRODUCT USED FOR UNKNOWN INDICATION
  17. NORCO [Concomitant]
     Indication: PRODUCT USED FOR UNKNOWN INDICATION
     Dates: start: 20121008
  18. COUMADIN [Concomitant]
     Indication: DEEP VEIN THROMBOSIS
     Route: 048
     Dates: start: 20130212
  19. ATORVASTATIN [Concomitant]
     Indication: BLOOD CHOLESTEROL INCREASED
     Route: 048
     Dates: start: 20120712
  20. LANTUS [Concomitant]
     Indication: PRODUCT USED FOR UNKNOWN INDICATION
     Route: 058
  21. METFORMIN [Concomitant]
     Indication: PRODUCT USED FOR UNKNOWN INDICATION

REACTIONS (6)
  - Localised infection [Recovered/Resolved]
  - Neuropathy peripheral [Not Recovered/Not Resolved]
  - Abasia [Unknown]
  - Dyspnoea [Unknown]
  - Drug ineffective [Unknown]
  - Osteomyelitis [Unknown]
